FAERS Safety Report 4816895-3 (Version None)
Quarter: 2005Q4

REPORT INFORMATION
  Report Type: 
  Country: None (occurrence: None)
  Receive Date: 20051031
  Receipt Date: 20051031
  Transmission Date: 20060501
  Serious: Yes (Hospitalization)
  Sender: FDA-Public Use
  Company Number: None

PATIENT
  Age: 45 Year
  Sex: Male

DRUGS (8)
  1. FUROSEMIDE [Suspect]
     Dosage: 80 MG BID
     Dates: start: 20040701
  2. LISINOPRIL [Suspect]
     Indication: HYPERTENSION
     Dosage: 40 MG QD
     Dates: start: 20041101
  3. METOLOZONE [Suspect]
     Indication: HYPERTENSION
     Dosage: 5 MG QD
     Dates: start: 20041201
  4. COLCHICINE [Concomitant]
  5. ZOCOR [Concomitant]
  6. CARVEDILOL [Concomitant]
  7. ASPIRIN [Concomitant]
  8. ISOSORBIDE [Concomitant]

REACTIONS (1)
  - RENAL FAILURE ACUTE [None]
